FAERS Safety Report 13839831 (Version 1)
Quarter: 2017Q3

REPORT INFORMATION
  Report Type: Spontaneous
  Country: US (occurrence: US)
  Receive Date: 20170805
  Receipt Date: 20170805
  Transmission Date: 20171127
  Serious: No
  Sender: FDA-Public Use
  Company Number: None

PATIENT
  Age: 64 Year
  Sex: Female

DRUGS (11)
  1. OXYCODONE [Concomitant]
     Active Substance: OXYCODONE
  2. SUCRALFATE. [Concomitant]
     Active Substance: SUCRALFATE
  3. ENOXAPARIN [Suspect]
     Active Substance: ENOXAPARIN
     Indication: DEEP VEIN THROMBOSIS
     Route: 058
     Dates: start: 20161220, end: 20161227
  4. MORPHINE [Concomitant]
     Active Substance: MORPHINE
  5. NITROGLYCERIN. [Concomitant]
     Active Substance: NITROGLYCERIN
  6. FAMOTIDINE. [Concomitant]
     Active Substance: FAMOTIDINE
  7. LIDOCAINE. [Concomitant]
     Active Substance: LIDOCAINE
  8. METOPROLOL TARTRATE. [Concomitant]
     Active Substance: METOPROLOL TARTRATE
  9. CEFPODOXIME [Concomitant]
     Active Substance: CEFPODOXIME
  10. ISOSORBIDE DINITRATE. [Concomitant]
     Active Substance: ISOSORBIDE DINITRATE
  11. LOPERAMIDE [Concomitant]
     Active Substance: LOPERAMIDE

REACTIONS (5)
  - Hypotension [None]
  - Muscle haemorrhage [None]
  - Abdominal pain [None]
  - Haemoglobin decreased [None]
  - Haemorrhage [None]

NARRATIVE: CASE EVENT DATE: 20161227
